FAERS Safety Report 21508018 (Version 1)
Quarter: 2022Q4

REPORT INFORMATION
  Report Type: Spontaneous
  Country: RU (occurrence: None)
  Receive Date: 20221026
  Receipt Date: 20221026
  Transmission Date: 20230113
  Serious: Yes (Hospitalization, Other)
  Sender: FDA-Public Use
  Company Number: 2022A352276

PATIENT
  Age: 27 Year
  Sex: Male
  Weight: 78 kg

DRUGS (6)
  1. SYMBICORT [Suspect]
     Active Substance: BUDESONIDE\FORMOTEROL FUMARATE DIHYDRATE
     Indication: Asthma
     Dosage: 160/4.5 MCG/INHALATION, 2 INHALES TWICE PER DAY
     Route: 055
  2. FENOTEROL HYDROBROMIDE\IPRATROPIUM BROMIDE [Concomitant]
     Active Substance: FENOTEROL HYDROBROMIDE\IPRATROPIUM BROMIDE
  3. SINGULAIR [Concomitant]
     Active Substance: MONTELUKAST SODIUM
  4. LORATADINE [Concomitant]
     Active Substance: LORATADINE
  5. DEXAMETHASONE [Concomitant]
     Active Substance: DEXAMETHASONE
  6. PULMICORT TURBUHALER [Concomitant]
     Active Substance: BUDESONIDE

REACTIONS (2)
  - COVID-19 pneumonia [Recovered/Resolved]
  - COVID-19 [Recovered/Resolved]
